FAERS Safety Report 25082893 (Version 1)
Quarter: 2025Q1

REPORT INFORMATION
  Report Type: Spontaneous
  Country: US (occurrence: US)
  Receive Date: 20250317
  Receipt Date: 20250317
  Transmission Date: 20250409
  Serious: Yes (Hospitalization, Other)
  Sender: STRIDES
  Company Number: None

PATIENT
  Age: 41 Year
  Sex: Female

DRUGS (1)
  1. IBUPROFEN [Suspect]
     Active Substance: IBUPROFEN
     Indication: Abdominal discomfort
     Route: 065

REACTIONS (3)
  - Renal tubular injury [Recovered/Resolved]
  - Acute kidney injury [Recovered/Resolved]
  - End stage renal disease [Recovered/Resolved]
